FAERS Safety Report 7207279-1 (Version None)
Quarter: 2011Q1

REPORT INFORMATION
  Report Type: 
  Country: None (occurrence: None)
  Receive Date: 20110103
  Receipt Date: 20101221
  Transmission Date: 20110831
  Serious: Yes (Hospitalization)
  Sender: FDA-Public Use
  Company Number: FR-SANOFI-AVENTIS-2010SA076853

PATIENT
  Sex: Female

DRUGS (3)
  1. RIFADINE [Suspect]
     Route: 042
     Dates: start: 20100930, end: 20101009
  2. AMOXICILLIN [Suspect]
     Route: 042
     Dates: start: 20100927, end: 20100930
  3. DALACIN [Suspect]
     Route: 042
     Dates: start: 20100930, end: 20101011

REACTIONS (3)
  - CHOLESTASIS [None]
  - EOSINOPHILIA [None]
  - RASH [None]
